FAERS Safety Report 7601271-0 (Version None)
Quarter: 2011Q3

REPORT INFORMATION
  Report Type: 
  Country: None (occurrence: None)
  Receive Date: 20110711
  Receipt Date: 20110630
  Transmission Date: 20111222
  Serious: Yes (Other)
  Sender: FDA-Public Use
  Company Number: PHHY2011BE52212

PATIENT
  Sex: Male

DRUGS (1)
  1. SIMVASTATIN [Suspect]
     Indication: HYPERCHOLESTEROLAEMIA
     Dosage: 10 MG (IN THE EVENING)
     Dates: start: 20101101, end: 20110609

REACTIONS (4)
  - MUSCLE SPASMS [None]
  - TENDON PAIN [None]
  - FALL [None]
  - DYSSTASIA [None]
